FAERS Safety Report 12412196 (Version 3)
Quarter: 2016Q2

REPORT INFORMATION
  Report Type: Spontaneous
  Country: JP (occurrence: JP)
  Receive Date: 20160527
  Receipt Date: 20160621
  Transmission Date: 20160815
  Serious: Yes (Death, Hospitalization)
  Sender: FDA-Public Use
  Company Number: JP-JNJFOC-20160525407

PATIENT
  Age: 60 Year
  Sex: Male

DRUGS (7)
  1. ROZEREM [Concomitant]
     Active Substance: RAMELTEON
     Route: 048
  2. CHLORPROMAZINE HYDROCHLORIDE. [Concomitant]
     Active Substance: CHLORPROMAZINE HYDROCHLORIDE
     Route: 065
  3. TASMOLIN [Concomitant]
     Active Substance: BIPERIDEN
     Route: 048
  4. FLUNITRAZEPAM [Concomitant]
     Active Substance: FLUNITRAZEPAM
     Route: 065
  5. CONTOMIN [Concomitant]
     Active Substance: CHLORPROMAZINE
     Route: 065
  6. RISPERDAL CONSTA [Suspect]
     Active Substance: RISPERIDONE
     Indication: PRODUCT USED FOR UNKNOWN INDICATION
     Route: 030
     Dates: start: 201303
  7. ZOTEPINE [Concomitant]
     Active Substance: ZOTEPINE
     Route: 048

REACTIONS (3)
  - Nasopharyngitis [Recovered/Resolved]
  - Sudden death [Fatal]
  - Asthenia [Unknown]

NARRATIVE: CASE EVENT DATE: 20160517
